FAERS Safety Report 12657550 (Version 2)
Quarter: 2016Q3

REPORT INFORMATION
  Report Type: Spontaneous
  Country: US (occurrence: US)
  Receive Date: 20160816
  Receipt Date: 20160924
  Transmission Date: 20161109
  Serious: Yes (Life-Threatening, Hospitalization, Disabling, Other)
  Sender: FDA-Public Use
  Company Number: US-009507513-1608USA007071

PATIENT
  Sex: Male

DRUGS (4)
  1. ISENTRESS [Suspect]
     Active Substance: RALTEGRAVIR POTASSIUM
     Indication: HIV INFECTION
     Dosage: 400 MG, BID
     Route: 048
     Dates: start: 2014, end: 20160810
  2. EFAVIRENZ [Concomitant]
     Active Substance: EFAVIRENZ
  3. EMTRICITABINE [Concomitant]
     Active Substance: EMTRICITABINE
  4. TENOFOVIR [Concomitant]
     Active Substance: TENOFOVIR

REACTIONS (3)
  - Obstructive nephropathy [Unknown]
  - Nephrolithiasis [Unknown]
  - Renal failure [Unknown]
